FAERS Safety Report 5501522-2 (Version None)
Quarter: 2007Q4

REPORT INFORMATION
  Report Type: 
  Country: None (occurrence: None)
  Receive Date: 20071030
  Receipt Date: 20071024
  Transmission Date: 20080405
  Serious: Yes (Disabling)
  Sender: FDA-Public Use
  Company Number: PHRM2007FR02458

PATIENT
  Sex: Female

DRUGS (3)
  1. ZOMETA [Suspect]
     Indication: METASTASES TO BONE
     Dosage: 4 MG, QMO
     Route: 042
     Dates: start: 20030515, end: 20060615
  2. LYTOS [Suspect]
     Indication: METASTASES TO BONE
     Dosage: 1040 MG PER DAY
     Route: 048
     Dates: start: 20060615
  3. XELODA [Concomitant]
     Indication: METASTASES TO BONE
     Dates: start: 20060601

REACTIONS (2)
  - DENTAL CARE [None]
  - OSTEONECROSIS [None]
